FAERS Safety Report 15495955 (Version 2)
Quarter: 2018Q4

REPORT INFORMATION
  Report Type: Spontaneous
  Country: US (occurrence: US)
  Receive Date: 20181014
  Receipt Date: 20181121
  Transmission Date: 20190205
  Serious: No
  Sender: FDA-Public Use
  Company Number: US-JNJFOC-20180935261

PATIENT
  Sex: Male
  Weight: 79.38 kg

DRUGS (3)
  1. RISPERDAL CONSTA [Suspect]
     Active Substance: RISPERIDONE
     Indication: PRODUCT USED FOR UNKNOWN INDICATION
     Route: 030
     Dates: start: 2005, end: 2009
  2. FLEXERIL [Suspect]
     Active Substance: CYCLOBENZAPRINE HYDROCHLORIDE
     Indication: RESTLESS LEGS SYNDROME
     Dosage: ONCE A DAY IN THE EVENING
     Route: 065
     Dates: start: 2005, end: 2010
  3. RISPERDAL [Suspect]
     Active Substance: RISPERIDONE
     Indication: PRODUCT USED FOR UNKNOWN INDICATION
     Route: 048
     Dates: start: 2009, end: 2010

REACTIONS (6)
  - Migraine [Not Recovered/Not Resolved]
  - Salivary hypersecretion [Recovered/Resolved]
  - Feeling abnormal [Recovered/Resolved]
  - Restless legs syndrome [Not Recovered/Not Resolved]
  - Treatment noncompliance [Unknown]
  - Discomfort [Recovered/Resolved]
